FAERS Safety Report 10157972 (Version 1)
Quarter: 2014Q2

REPORT INFORMATION
  Report Type: Spontaneous
  Country: US (occurrence: US)
  Receive Date: 20140507
  Receipt Date: 20140507
  Transmission Date: 20141212
  Serious: Yes (Other)
  Sender: FDA-Public Use
  Company Number: US-GLAXOSMITHKLINE-A1072195A

PATIENT
  Age: 67 Year
  Sex: Female

DRUGS (1)
  1. VALTREX [Suspect]
     Indication: VIRAL INFECTION
     Dosage: 500MG UNKNOWN
     Route: 065
     Dates: start: 20101029

REACTIONS (4)
  - Blindness unilateral [Unknown]
  - Renal failure chronic [Unknown]
  - Neoplasm malignant [Unknown]
  - Nephrectomy [Unknown]
